APPROVED DRUG PRODUCT: LANABIOTIC
Active Ingredient: BACITRACIN; POLYMYXIN B SULFATE
Strength: 500 UNITS/GM;5,000 UNITS/GM
Dosage Form/Route: DISC;TOPICAL
Application: N050598 | Product #001
Applicant: COMBE INC
Approved: Sep 22, 1986 | RLD: No | RS: No | Type: DISCN